FAERS Safety Report 22282269 (Version 6)
Quarter: 2023Q4

REPORT INFORMATION
  Report Type: Spontaneous
  Country: US (occurrence: US)
  Receive Date: 20230504
  Receipt Date: 20231231
  Transmission Date: 20240109
  Serious: No
  Sender: FDA-Public Use
  Company Number: US-GLAXOSMITHKLINE-US2023063347

PATIENT
  Sex: Female
  Weight: 84.1 kg

DRUGS (4)
  1. ZEJULA [Suspect]
     Active Substance: NIRAPARIB
     Indication: Breast cancer female
     Dosage: 200 MG, QD
     Route: 048
     Dates: start: 20230403
  2. ZEJULA [Suspect]
     Active Substance: NIRAPARIB
     Dosage: 200 MG, QD
     Route: 048
  3. ZEJULA [Suspect]
     Active Substance: NIRAPARIB
     Dosage: 200 MG, QD
     Route: 048
  4. ZEJULA [Suspect]
     Active Substance: NIRAPARIB
     Indication: Breast cancer female
     Dosage: UNK

REACTIONS (15)
  - Initial insomnia [Unknown]
  - Nausea [Unknown]
  - Energy increased [Unknown]
  - White blood cell count decreased [Unknown]
  - Hair growth abnormal [Not Recovered/Not Resolved]
  - Red blood cell count decreased [Unknown]
  - Feeling abnormal [Unknown]
  - Headache [Unknown]
  - Insomnia [Unknown]
  - Dizziness [Unknown]
  - Head discomfort [Unknown]
  - Carbohydrate antigen 125 increased [Unknown]
  - Lymphadenopathy [Unknown]
  - Product use in unapproved indication [Unknown]
  - Product dose omission issue [Unknown]
